FAERS Safety Report 19896456 (Version 1)
Quarter: 2021Q3

REPORT INFORMATION
  Report Type: Spontaneous
  Country: DE (occurrence: DE)
  Receive Date: 20210929
  Receipt Date: 20210929
  Transmission Date: 20211014
  Serious: Yes (Life-Threatening)
  Sender: FDA-Public Use
  Company Number: DE-AMERICAN REGENT INC-2021002246

PATIENT
  Age: 26 Year
  Sex: Female
  Weight: 71.4 kg

DRUGS (1)
  1. FERINJECT [Suspect]
     Active Substance: FERRIC CARBOXYMALTOSE
     Indication: PRODUCT USED FOR UNKNOWN INDICATION
     Dosage: 500 MG
     Dates: start: 20210618, end: 20210618

REACTIONS (6)
  - Hypoaesthesia [Recovered/Resolved]
  - Rash [Recovered/Resolved]
  - Respiratory distress [Recovered/Resolved]
  - Incorrect product administration duration [Unknown]
  - Flushing [Recovered/Resolved]
  - Dysgeusia [Recovered/Resolved]

NARRATIVE: CASE EVENT DATE: 20210618
